FAERS Safety Report 4476088-9 (Version None)
Quarter: 2004Q4

REPORT INFORMATION
  Report Type: 
  Country: None (occurrence: None)
  Receive Date: 20041012
  Receipt Date: 20040923
  Transmission Date: 20050328
  Serious: Yes (Death)
  Sender: FDA-Public Use
  Company Number: 205268

PATIENT
  Age: 56 Year
  Sex: Female

DRUGS (7)
  1. AVONEX [Suspect]
     Indication: MULTIPLE SCLEROSIS
     Dosage: 30 MCG QW IM
     Route: 030
     Dates: start: 19980901
  2. BETASERON [Concomitant]
  3. COLD ADVIL [Concomitant]
  4. CORTICOSTEROIDS [Concomitant]
  5. ANTIBIOTICS [Concomitant]
  6. DYAZIDE [Concomitant]
  7. ATENOLOL [Concomitant]

REACTIONS (10)
  - ARTHROPOD BITE [None]
  - BASAL CELL CARCINOMA [None]
  - CELLULITIS [None]
  - DRUG HYPERSENSITIVITY [None]
  - HYPERTENSION [None]
  - MULTIPLE SCLEROSIS RELAPSE [None]
  - NASOPHARYNGITIS [None]
  - NAUSEA [None]
  - URINARY TRACT INFECTION [None]
  - VOMITING [None]
